FAERS Safety Report 25186521 (Version 2)
Quarter: 2025Q4

REPORT INFORMATION
  Report Type: Spontaneous
  Country: US (occurrence: US)
  Receive Date: 20250411
  Receipt Date: 20251212
  Transmission Date: 20260118
  Serious: Yes (Other)
  Sender: MERCK SHARP & DOHME LLC
  Company Number: US-009507513-2270714

PATIENT
  Age: 43 Year
  Sex: Female

DRUGS (1)
  1. KEYTRUDA [Suspect]
     Active Substance: PEMBROLIZUMAB
     Indication: Breast cancer
     Route: 042
     Dates: start: 201709, end: 20181222

REACTIONS (4)
  - Hypothyroidism [Recovered/Resolved]
  - Surgery [Recovering/Resolving]
  - Maternal exposure before pregnancy [Unknown]
  - Surgery [Unknown]

NARRATIVE: CASE EVENT DATE: 20250801
